FAERS Safety Report 11467899 (Version 1)
Quarter: 2015Q3

REPORT INFORMATION
  Report Type: Spontaneous
  Country: US (occurrence: None)
  Receive Date: 20150904
  Receipt Date: 20150904
  Transmission Date: 20151125
  Serious: No
  Sender: FDA-Public Use
  Company Number: None

PATIENT
  Age: 55 Year
  Sex: Female

DRUGS (4)
  1. VALART/HCTZ [Concomitant]
  2. FASLODEX [Concomitant]
     Active Substance: FULVESTRANT
  3. IBRANCE [Suspect]
     Active Substance: PALBOCICLIB
     Indication: BREAST CANCER
     Dosage: 125MG ?QD 21 DAYS ?PO?
     Route: 048
     Dates: start: 20150805
  4. HYDROCOD/APAP [Concomitant]

REACTIONS (2)
  - Drug dose omission [None]
  - No adverse event [None]

NARRATIVE: CASE EVENT DATE: 20150903
